FAERS Safety Report 7605792-6 (Version None)
Quarter: 2011Q3

REPORT INFORMATION
  Report Type: 
  Country: None (occurrence: None)
  Receive Date: 20110705
  Receipt Date: 20110624
  Transmission Date: 20111222
  Serious: Yes (Hospitalization, Other)
  Sender: FDA-Public Use
  Company Number: 2011AC000039

PATIENT
  Age: 60 Year
  Sex: Female

DRUGS (6)
  1. DIGOXIN [Suspect]
     Indication: CARDIAC FAILURE CONGESTIVE
     Dosage: .025 MG;QD;PO
     Route: 048
     Dates: start: 20070801, end: 20090301
  2. DIGOXIN [Suspect]
     Dosage: 0.125 MG;QD;PO
     Route: 048
     Dates: start: 20080401, end: 20080501
  3. DIGOXIN [Suspect]
     Dosage: 0.125 MG;QD;PO
     Route: 048
     Dates: start: 20090601, end: 20090901
  4. DIGOXIN [Suspect]
     Indication: CARDIAC FAILURE CONGESTIVE
     Dosage: 0.125 MG;QD;PO
     Route: 048
     Dates: start: 20060101, end: 20080601
  5. DIGOXIN [Suspect]
     Dosage: 0.25 MG;QD;PO
     Route: 048
     Dates: start: 20080501, end: 20080901
  6. DIGOXIN [Suspect]
     Dosage: 0.25 MG;QD;PO
     Route: 048
     Dates: start: 20090101, end: 20090401

REACTIONS (8)
  - RENAL FAILURE [None]
  - MULTIPLE INJURIES [None]
  - VOMITING [None]
  - MENTAL DISORDER [None]
  - EMOTIONAL DISORDER [None]
  - NAUSEA [None]
  - TOXICITY TO VARIOUS AGENTS [None]
  - DIARRHOEA [None]
